FAERS Safety Report 5508339-3 (Version None)
Quarter: 2007Q4

REPORT INFORMATION
  Report Type: 
  Country: None (occurrence: None)
  Receive Date: 20071106
  Receipt Date: 20071029
  Transmission Date: 20080405
  Serious: Yes (Other)
  Sender: FDA-Public Use
  Company Number: ZA-ABBOTT-07P-143-0422699-00

PATIENT
  Sex: Female

DRUGS (1)
  1. KLACID [Suspect]
     Indication: LOWER RESPIRATORY TRACT INFECTION

REACTIONS (3)
  - DEAFNESS [None]
  - NIGHTMARE [None]
  - VISUAL DISTURBANCE [None]
